FAERS Safety Report 6917103-X (Version None)
Quarter: 2010Q3

REPORT INFORMATION
  Report Type: 
  Country: None (occurrence: None)
  Receive Date: 20100810
  Receipt Date: 20100802
  Transmission Date: 20110219
  Serious: Yes (Other)
  Sender: FDA-Public Use
  Company Number: B0668167A

PATIENT
  Sex: Male

DRUGS (2)
  1. CEFUROXIME [Suspect]
     Indication: PRODUCT USED FOR UNKNOWN INDICATION
     Route: 048
     Dates: start: 20100101
  2. PANTOPRAZOLE SODIUM [Concomitant]
     Indication: GASTRODUODENAL ULCER
     Dosage: 1UNIT PER DAY
     Route: 048

REACTIONS (1)
  - GASTRODUODENAL ULCER [None]
